FAERS Safety Report 15550428 (Version 2)
Quarter: 2018Q4

REPORT INFORMATION
  Report Type: Spontaneous
  Country: CN (occurrence: CN)
  Receive Date: 20181025
  Receipt Date: 20181115
  Transmission Date: 20190205
  Serious: Yes (Other)
  Sender: FDA-Public Use
  Company Number: CN-ELI_LILLY_AND_COMPANY-CN201810011392

PATIENT
  Age: 55 Year
  Sex: Male

DRUGS (1)
  1. GEMCITABINE HYDROCHLORIDE. [Suspect]
     Active Substance: GEMCITABINE HYDROCHLORIDE
     Indication: NON-SMALL CELL LUNG CANCER
     Dosage: 1000 MG, UNKNOWN
     Route: 042

REACTIONS (5)
  - Laryngospasm [Recovering/Resolving]
  - Laryngeal oedema [Recovering/Resolving]
  - Hypoaesthesia oral [Recovering/Resolving]
  - Flushing [Recovering/Resolving]
  - Hypoaesthesia [Recovering/Resolving]
